FAERS Safety Report 7472946-1 (Version None)
Quarter: 2011Q2

REPORT INFORMATION
  Report Type: 
  Country: None (occurrence: None)
  Receive Date: 20110503
  Receipt Date: 20110419
  Transmission Date: 20111010
  Serious: Yes (Other)
  Sender: FDA-Public Use
  Company Number: 031744

PATIENT
  Sex: Female
  Weight: 58.7 kg

DRUGS (2)
  1. PENTASA [Concomitant]
  2. CIMZIA [Suspect]
     Indication: CROHN'S DISEASE
     Dosage: (SUBCUTANEOUS)
     Route: 058
     Dates: start: 20110417

REACTIONS (2)
  - INJECTION SITE SWELLING [None]
  - BUTTERFLY RASH [None]
